FAERS Safety Report 8080583-3 (Version None)
Quarter: 2012Q1

REPORT INFORMATION
  Report Type: 
  Country: None (occurrence: None)
  Receive Date: 20120130
  Receipt Date: 20120123
  Transmission Date: 20120608
  Serious: Yes (Other)
  Sender: FDA-Public Use
  Company Number: JP-JNJFOC-20111010342

PATIENT
  Age: 75 Year
  Sex: Female

DRUGS (5)
  1. GALANTAMINE HYDROBROMIDE [Suspect]
     Indication: DEMENTIA
     Route: 048
     Dates: start: 20111004, end: 20111101
  2. CORTRIL [Suspect]
     Route: 048
  3. AMLODIPINE [Concomitant]
     Route: 048
  4. CORTRIL [Suspect]
     Indication: PRODUCT USED FOR UNKNOWN INDICATION
     Route: 048
  5. LEVOTHYROXINE SODIUM [Concomitant]
     Route: 048

REACTIONS (1)
  - DECREASED APPETITE [None]
